FAERS Safety Report 20683221 (Version 1)
Quarter: 2022Q2

REPORT INFORMATION
  Report Type: Spontaneous
  Country: US (occurrence: US)
  Receive Date: 20220407
  Receipt Date: 20220407
  Transmission Date: 20220720
  Serious: No
  Sender: FDA-Public Use
  Company Number: US-BIOGEN-2022BI01112244

PATIENT
  Age: 70 Year
  Sex: Female

DRUGS (2)
  1. VUMERITY [Suspect]
     Active Substance: DIROXIMEL FUMARATE
     Indication: Multiple sclerosis
     Dosage: STARTER DOSE
     Route: 065
     Dates: start: 20211115, end: 20211122
  2. VUMERITY [Suspect]
     Active Substance: DIROXIMEL FUMARATE
     Dosage: MAINTENANCE DOSE
     Route: 065

REACTIONS (2)
  - Influenza like illness [Unknown]
  - Flushing [Unknown]

NARRATIVE: CASE EVENT DATE: 20211101
